FAERS Safety Report 24531843 (Version 1)
Quarter: 2024Q4

REPORT INFORMATION
  Report Type: Report from Study
  Country: US (occurrence: US)
  Receive Date: 20241022
  Receipt Date: 20241022
  Transmission Date: 20250114
  Serious: No
  Sender: SANDOZ
  Company Number: US-002147023-NVSC2022US224764

PATIENT
  Age: 11 Year
  Sex: Female

DRUGS (4)
  1. OMNITROPE [Suspect]
     Active Substance: SOMATROPIN
     Dosage: UNK, QD
     Route: 065
     Dates: start: 20241018
  2. OMNITROPE [Suspect]
     Active Substance: SOMATROPIN
     Dosage: UNK, QD
     Route: 065
     Dates: start: 20241018
  3. OMNITROPE [Suspect]
     Active Substance: SOMATROPIN
     Indication: Short stature
     Dosage: 1.5 MG, OTHER,(DAILY 6 DAYS PER WEEK)
     Route: 058
     Dates: start: 20220929
  4. OMNITROPE [Suspect]
     Active Substance: SOMATROPIN
     Indication: Short stature
     Dosage: 1.5 MG, OTHER,(DAILY 6 DAYS PER WEEK)
     Route: 058
     Dates: start: 20220929

REACTIONS (5)
  - Fear of injection [Unknown]
  - Injection site pain [Unknown]
  - Injection site haemorrhage [Unknown]
  - Product leakage [Unknown]
  - Device use issue [Unknown]

NARRATIVE: CASE EVENT DATE: 20220930
